FAERS Safety Report 9709090 (Version 3)
Quarter: 2014Q2

REPORT INFORMATION
  Report Type: Report from Study
  Country: BR (occurrence: BR)
  Receive Date: 20131125
  Receipt Date: 20140403
  Transmission Date: 20141212
  Serious: Yes (Hospitalization, Other)
  Sender: FDA-Public Use
  Company Number: BR-ABBVIE-13P-020-1171215-00

PATIENT
  Sex: Female
  Weight: 72 kg

DRUGS (11)
  1. HUMIRA [Suspect]
     Indication: RHEUMATOID ARTHRITIS
     Route: 058
  2. ENALAPRIL [Concomitant]
     Indication: BLOOD PRESSURE ABNORMAL
     Route: 048
  3. METOPROLOL [Concomitant]
     Indication: PRODUCT USED FOR UNKNOWN INDICATION
     Route: 048
  4. AMLODIPINE [Concomitant]
     Indication: PRODUCT USED FOR UNKNOWN INDICATION
     Route: 048
  5. PROFENID [Concomitant]
     Indication: PRODUCT USED FOR UNKNOWN INDICATION
     Route: 048
  6. PREDNISONE [Concomitant]
     Indication: RHEUMATIC DISORDER
     Route: 048
  7. PREDNISONE [Concomitant]
  8. SELOZOK FIX [Concomitant]
     Indication: CARDIAC DISORDER
  9. OMEPRAZOLE [Concomitant]
     Indication: GASTRIC DISORDER
  10. UNKNOWN MEDICATION [Concomitant]
     Indication: PAIN
  11. CALCIUM [Concomitant]
     Indication: PRODUCT USED FOR UNKNOWN INDICATION

REACTIONS (7)
  - Lumbar vertebral fracture [Recovered/Resolved]
  - Pelvic fracture [Recovering/Resolving]
  - Pain in extremity [Recovered/Resolved]
  - Pulmonary oedema [Recovered/Resolved]
  - Pleural effusion [Recovered/Resolved]
  - Pyrexia [Recovered/Resolved]
  - Weight decreased [Unknown]
